FAERS Safety Report 15428373 (Version 1)
Quarter: 2018Q3

REPORT INFORMATION
  Report Type: Spontaneous
  Country: IE (occurrence: IE)
  Receive Date: 20180926
  Receipt Date: 20180926
  Transmission Date: 20181010
  Serious: Yes (Disabling)
  Sender: FDA-Public Use
  Company Number: IE-ASTRAZENECA-2018SF24049

PATIENT
  Age: 37 Year
  Sex: Male

DRUGS (8)
  1. QUETIAPINE. [Suspect]
     Active Substance: QUETIAPINE
     Indication: ANXIETY
     Dosage: 25.0MG UNKNOWN
     Route: 048
     Dates: start: 20141215, end: 20171215
  2. QUETIAPINE. [Suspect]
     Active Substance: QUETIAPINE
     Indication: DEPRESSION
     Dosage: 25.0MG UNKNOWN
     Route: 048
     Dates: start: 20141215, end: 20171215
  3. SERTRALINE [Suspect]
     Active Substance: SERTRALINE HYDROCHLORIDE
     Indication: ANXIETY
     Dosage: 100.0MG UNKNOWN
     Route: 065
     Dates: start: 20141104, end: 20180907
  4. MIRAP [Concomitant]
     Indication: DEPRESSION
     Dates: start: 20170724, end: 20180907
  5. AMITRIPTYLINE [Concomitant]
     Active Substance: AMITRIPTYLINE
     Indication: INSOMNIA
     Dosage: 25.0MG UNKNOWN
     Dates: start: 20010112, end: 20151125
  6. MIRAP [Concomitant]
     Indication: ANXIETY
     Dates: start: 20170724, end: 20180907
  7. SERTRALINE [Suspect]
     Active Substance: SERTRALINE HYDROCHLORIDE
     Indication: DEPRESSION
     Dosage: 100.0MG UNKNOWN
     Route: 065
     Dates: start: 20141104, end: 20180907
  8. AMITRIPTYLINE [Concomitant]
     Active Substance: AMITRIPTYLINE
     Indication: IRRITABLE BOWEL SYNDROME
     Dosage: 25.0MG UNKNOWN
     Dates: start: 20010112, end: 20151125

REACTIONS (2)
  - Tongue spasm [Not Recovered/Not Resolved]
  - Muscle twitching [Not Recovered/Not Resolved]

NARRATIVE: CASE EVENT DATE: 20160107
